FAERS Safety Report 12405521 (Version 1)
Quarter: 2016Q2

REPORT INFORMATION
  Report Type: Other
  Country: TR (occurrence: TR)
  Receive Date: 20160525
  Receipt Date: 20160525
  Transmission Date: 20160815
  Serious: Yes (Other)
  Sender: FDA-Public Use
  Company Number: TR-LUPIN PHARMACEUTICALS INC.-2016-02084

PATIENT
  Age: 26 Year
  Sex: Female

DRUGS (4)
  1. BIPERIDEN [Concomitant]
     Active Substance: BIPERIDEN
     Indication: SCHIZOPHRENIA
     Dosage: 2 MG
     Route: 065
  2. LORAZEPAM. [Suspect]
     Active Substance: LORAZEPAM
     Indication: ANXIETY
     Route: 048
  3. VALPROIC ACID. [Interacting]
     Active Substance: VALPROIC ACID
     Indication: SCHIZOPHRENIA
     Dosage: 750 MG
     Route: 065
  4. HALOPERIDOL. [Concomitant]
     Active Substance: HALOPERIDOL
     Indication: SCHIZOPHRENIA
     Dosage: 10 MG
     Route: 065

REACTIONS (2)
  - Stupor [Recovered/Resolved]
  - Drug interaction [Unknown]
